FAERS Safety Report 9691377 (Version 2)
Quarter: 2014Q1

REPORT INFORMATION
  Report Type: Spontaneous
  Country: FR (occurrence: FR)
  Receive Date: 20131115
  Receipt Date: 20140117
  Transmission Date: 20141002
  Serious: Yes (Other)
  Sender: FDA-Public Use
  Company Number: FR-ASTRAZENECA-2013SE82137

PATIENT
  Age: 13433 Day
  Sex: Male

DRUGS (5)
  1. XEROQUEL [Suspect]
     Indication: CHILDHOOD PSYCHOSIS
     Route: 048
  2. ALPRAZOLAM [Concomitant]
     Indication: ANXIETY
  3. AVLOCARDYL [Concomitant]
     Indication: HYPERTENSION
     Dates: start: 201203
  4. INEXIUM [Concomitant]
     Indication: GASTRIC ULCER
     Dates: start: 201206
  5. TERCIAN [Concomitant]
     Indication: INSOMNIA
     Dates: start: 201208

REACTIONS (6)
  - Cholelithiasis [Unknown]
  - Hepatomegaly [Unknown]
  - Transaminases increased [Recovering/Resolving]
  - Gamma-glutamyltransferase increased [Not Recovered/Not Resolved]
  - Blood alkaline phosphatase increased [Recovered/Resolved]
  - Off label use [Not Recovered/Not Resolved]
